FAERS Safety Report 17896259 (Version 1)
Quarter: 2020Q2

REPORT INFORMATION
  Report Type: Spontaneous
  Country: US (occurrence: US)
  Receive Date: 20200615
  Receipt Date: 20200615
  Transmission Date: 20200714
  Serious: No
  Sender: FDA-Public Use
  Company Number: US-AKRON, INC.-2085851

PATIENT
  Sex: Male

DRUGS (1)
  1. DICLOFENAC SODIUM TOPICAL GEL [Suspect]
     Active Substance: DICLOFENAC SODIUM
     Route: 061

REACTIONS (1)
  - Drug ineffective [Unknown]
